FAERS Safety Report 19249671 (Version 1)
Quarter: 2021Q2

REPORT INFORMATION
  Report Type: Report from Study
  Country: FR (occurrence: FR)
  Receive Date: 20210513
  Receipt Date: 20210513
  Transmission Date: 20210717
  Serious: Yes (Hospitalization, Other)
  Sender: FDA-Public Use
  Company Number: FR-SUN PHARMACEUTICAL INDUSTRIES LTD-2021R1-295616

PATIENT
  Age: 46 Year
  Sex: Male

DRUGS (3)
  1. TRAMADOL. [Concomitant]
     Active Substance: TRAMADOL
     Indication: PRODUCT USED FOR UNKNOWN INDICATION
     Dosage: UNK
     Route: 065
  2. GABAPENTIN. [Concomitant]
     Active Substance: GABAPENTIN
     Indication: PRODUCT USED FOR UNKNOWN INDICATION
     Dosage: UNK
     Route: 065
  3. PREGABALIN. [Suspect]
     Active Substance: PREGABALIN
     Indication: MENINGITIS VIRAL
     Dosage: 600 MG PER DAY
     Route: 065

REACTIONS (8)
  - Medication error [Unknown]
  - Drug dependence [Unknown]
  - Euphoric mood [Unknown]
  - Coordination abnormal [Unknown]
  - Confusional state [Unknown]
  - Dizziness [Unknown]
  - Disinhibition [Unknown]
  - Drug abuse [Unknown]
